FAERS Safety Report 25805469 (Version 2)
Quarter: 2025Q4

REPORT INFORMATION
  Report Type: Spontaneous
  Country: US (occurrence: US)
  Receive Date: 20250916
  Receipt Date: 20251017
  Transmission Date: 20260118
  Serious: No
  Sender: ADAMAS PHARMA
  Company Number: US-002147023-ADM202502-000524

PATIENT
  Age: 85 Year
  Sex: Female

DRUGS (10)
  1. GOCOVRI [Suspect]
     Active Substance: AMANTADINE
     Indication: Dyskinesia
     Dosage: NOT PROVIDED
     Route: 048
     Dates: start: 20241220
  2. GOCOVRI [Suspect]
     Active Substance: AMANTADINE
     Indication: Parkinson^s disease
     Dosage: NOT PROVIDED
     Route: 048
  3. ATORVASTATIN [Concomitant]
     Active Substance: ATORVASTATIN
     Dosage: NOT PROVIDED
  4. COLACE [Concomitant]
     Active Substance: DOCUSATE SODIUM
     Dosage: NOT PROVIDED
  5. MELATONIN [Concomitant]
     Active Substance: MELATONIN
     Dosage: NOT PROVIDED
  6. MIRTAZAPINE [Concomitant]
     Active Substance: MIRTAZAPINE
     Dosage: NOT PROVIDED
  7. RYTARY [Concomitant]
     Active Substance: CARBIDOPA\LEVODOPA
     Dosage: NOT PROVIDED
  8. CETIRIZINE [Concomitant]
     Active Substance: CETIRIZINE HYDROCHLORIDE
     Dosage: NOT PROVIDED
  9. ASPIRIN [Concomitant]
     Active Substance: ASPIRIN
     Dosage: NOT PROVIDED
  10. VITAMIN B12 [Concomitant]
     Active Substance: CYANOCOBALAMIN
     Dosage: NOT PROVIDED

REACTIONS (2)
  - Insomnia [Recovered/Resolved]
  - Inappropriate schedule of product administration [Unknown]

NARRATIVE: CASE EVENT DATE: 20241220
